FAERS Safety Report 20537887 (Version 1)
Quarter: 2022Q1

REPORT INFORMATION
  Report Type: Spontaneous
  Country: PL (occurrence: None)
  Receive Date: 20220302
  Receipt Date: 20220302
  Transmission Date: 20220423
  Serious: Yes (Other)
  Sender: FDA-Public Use
  Company Number: PL-ROCHE-3033668

PATIENT
  Sex: Female

DRUGS (1)
  1. HERCEPTIN [Suspect]
     Active Substance: TRASTUZUMAB
     Indication: HER2 positive breast cancer
     Route: 065
     Dates: start: 202103

REACTIONS (17)
  - Pyrexia [Unknown]
  - Myalgia [Unknown]
  - Cough [Unknown]
  - COVID-19 [Unknown]
  - Ill-defined disorder [Unknown]
  - Palpitations [Unknown]
  - Polyneuropathy [Unknown]
  - Onychomadesis [Unknown]
  - Sensory loss [Unknown]
  - Ill-defined disorder [Unknown]
  - Movement disorder [Unknown]
  - Ill-defined disorder [Unknown]
  - Skin lesion [Unknown]
  - Insomnia [Unknown]
  - Pain in extremity [Unknown]
  - Benign breast neoplasm [Unknown]
  - Feeling of body temperature change [Unknown]

NARRATIVE: CASE EVENT DATE: 20210401
